FAERS Safety Report 23839414 (Version 1)
Quarter: 2024Q2

REPORT INFORMATION
  Report Type: Report from Study
  Country: US (occurrence: US)
  Receive Date: 20240510
  Receipt Date: 20240510
  Transmission Date: 20240716
  Serious: No
  Sender: FDA-Public Use
  Company Number: US-ACADIA PHARMACEUTICALS INC.-ACA-2024-PIM-001875

PATIENT
  Sex: Male

DRUGS (1)
  1. NUPLAZID [Suspect]
     Active Substance: PIMAVANSERIN TARTRATE
     Indication: Parkinson^s disease psychosis
     Dosage: 34 MILLIGRAM, QD
     Route: 048
     Dates: start: 20240411, end: 20240414

REACTIONS (5)
  - Aphasia [Recovered/Resolved]
  - Memory impairment [Recovering/Resolving]
  - Insomnia [Recovered/Resolved]
  - Hallucination [Recovered/Resolved]
  - Gait disturbance [Recovering/Resolving]
